FAERS Safety Report 9244831 (Version 1)
Quarter: 2013Q2

REPORT INFORMATION
  Report Type: Spontaneous
  Country: FR (occurrence: FR)
  Receive Date: 20130422
  Receipt Date: 20130422
  Transmission Date: 20140414
  Serious: Yes (Hospitalization, Other)
  Sender: FDA-Public Use
  Company Number: FR-UCBSA-083799

PATIENT
  Age: 56 Year
  Sex: Male

DRUGS (7)
  1. MOEX [Suspect]
     Indication: HYPERTENSION
     Dosage: DAILY DOSE: 15 MG
     Route: 048
     Dates: start: 201302, end: 20130214
  2. KESTINLYO [Concomitant]
     Dosage: UNKNOWN DOSE
     Route: 048
     Dates: start: 20130211, end: 20130212
  3. FLAGYL [Concomitant]
     Route: 048
     Dates: start: 20130211, end: 20130212
  4. METEOXANE [Concomitant]
     Dosage: UNKNOWN DOSE
     Route: 048
     Dates: start: 20130211, end: 20130212
  5. PARACETAMOL [Concomitant]
     Dosage: DOSE: 1000MG ONCE TO FOUR TIMES DAILY
     Dates: start: 201302
  6. IBUPROFENE [Concomitant]
     Dosage: DOSE: 200MG ONCE OR TWICE DAILY
     Dates: start: 201302
  7. SPASFON [Concomitant]
     Dosage: DOSE: UNKNOWN, ONCE TO THREE TIMES DAILY
     Dates: start: 201302

REACTIONS (2)
  - Angioedema [Recovered/Resolved]
  - Ileitis [Unknown]
